FAERS Safety Report 9103599 (Version 2)
Quarter: 2013Q1

REPORT INFORMATION
  Report Type: Spontaneous
  Country: US (occurrence: US)
  Receive Date: 20130219
  Receipt Date: 20130315
  Transmission Date: 20140127
  Serious: Yes (Hospitalization, Other)
  Sender: FDA-Public Use
  Company Number: US-PFIZER INC-2013058154

PATIENT
  Age: 31 Month
  Sex: Male
  Weight: 12.25 kg

DRUGS (1)
  1. BENEFIX [Suspect]
     Indication: FACTOR IX DEFICIENCY
     Dosage: 50 IU/KG, WEEKLY

REACTIONS (3)
  - Disease complication [Unknown]
  - Haemorrhage [Unknown]
  - Off label use [Unknown]
